FAERS Safety Report 14543933 (Version 2)
Quarter: 2018Q3

REPORT INFORMATION
  Report Type: Report from Study
  Country: KR (occurrence: KR)
  Receive Date: 20180216
  Receipt Date: 20180821
  Transmission Date: 20181010
  Serious: Yes (Death)
  Sender: FDA-Public Use
  Company Number: KR-PFIZER INC-2018067414

PATIENT

DRUGS (2)
  1. PACLITAXEL. [Suspect]
     Active Substance: PACLITAXEL
     Indication: ADENOCARCINOMA
     Dosage: 80 MG/M2, CYCLIC (ON DAYS 1, 8, AND 15 OF A 28 DAY CYCLE)
     Route: 042
  2. RAMUCIRUMAB [Suspect]
     Active Substance: RAMUCIRUMAB
     Indication: ADENOCARCINOMA
     Dosage: 8 MG/KG, CYCLIC (ON DAYS 1, 8 AND 15 OF A 28 DAY CYCLE)
     Route: 042

REACTIONS (1)
  - Gastrointestinal perforation [Fatal]
